FAERS Safety Report 19475833 (Version 2)
Quarter: 2021Q3

REPORT INFORMATION
  Report Type: Spontaneous
  Country: ES (occurrence: ES)
  Receive Date: 20210630
  Receipt Date: 20210920
  Transmission Date: 20211014
  Serious: Yes (Disabling)
  Sender: FDA-Public Use
  Company Number: ES-009507513-2106ESP006930

PATIENT
  Age: 34 Year
  Sex: Female
  Weight: 61 kg

DRUGS (4)
  1. TEMODAL [Suspect]
     Active Substance: TEMOZOLOMIDE
     Indication: ASTROCYTOMA
     Dosage: 2 TABLETS OF 150 MG FIVE DAYS A MONTH, HARD CAPSULE, 20 CAPSULES
     Route: 048
     Dates: start: 20210107
  2. ZEBINIX [Concomitant]
     Active Substance: ESLICARBAZEPINE ACETATE
     Dosage: TABLET AND A HALF DAILY FOR APPROXIMATELY TWO YEARS, 30 TABLETS
     Dates: start: 20190204, end: 20210419
  3. VIMPAT [Concomitant]
     Active Substance: LACOSAMIDE
     Dosage: ONE TABLET DAILY, 14 TABLETS
     Dates: start: 20210508, end: 20210520
  4. AVASTIN [ATORVASTATIN CALCIUM] [Suspect]
     Active Substance: ATORVASTATIN CALCIUM
     Indication: ASTROCYTOMA
     Dosage: UNK; DOSE REDUCED TO 5MG / KG ONCE A MONTH AND 10 MG / KG ONCE A MONTH, STRENGTH: 25MG/ML, 1 VIAL OF
     Route: 042
     Dates: start: 20210107

REACTIONS (12)
  - Hand deformity [Not Recovered/Not Resolved]
  - Joint dislocation [Not Recovered/Not Resolved]
  - Asthenia [Not Recovered/Not Resolved]
  - Coordination abnormal [Not Recovered/Not Resolved]
  - Peroneal nerve palsy [Not Recovered/Not Resolved]
  - Lacrimation increased [Recovered/Resolved]
  - Insomnia [Not Recovered/Not Resolved]
  - Gait disturbance [Not Recovered/Not Resolved]
  - Paralysis [Not Recovered/Not Resolved]
  - Hypoaesthesia [Not Recovered/Not Resolved]
  - Paraesthesia [Not Recovered/Not Resolved]
  - Grip strength decreased [Not Recovered/Not Resolved]

NARRATIVE: CASE EVENT DATE: 20210208
